FAERS Safety Report 22935176 (Version 2)
Quarter: 2023Q4

REPORT INFORMATION
  Report Type: Spontaneous
  Country: US (occurrence: US)
  Receive Date: 20230912
  Receipt Date: 20231019
  Transmission Date: 20240109
  Serious: Yes (Death)
  Sender: FDA-Public Use
  Company Number: US-GE HEALTHCARE-2023CSU007820

PATIENT
  Age: 74 Year
  Sex: Male
  Weight: 70 kg

DRUGS (2)
  1. OMNIPAQUE [Suspect]
     Active Substance: IOHEXOL
     Indication: Computerised tomogram
     Dosage: 100 ML, ONCE INTO LEFT ANTICUBITAL FOSSA
     Route: 042
     Dates: start: 20230903, end: 20230903
  2. OMNIPAQUE [Suspect]
     Active Substance: IOHEXOL
     Indication: Fall

REACTIONS (3)
  - Pallor [Fatal]
  - Unresponsive to stimuli [Fatal]
  - Vomiting [Fatal]

NARRATIVE: CASE EVENT DATE: 20230903
